FAERS Safety Report 10246009 (Version 1)
Quarter: 2014Q2

REPORT INFORMATION
  Report Type: Spontaneous
  Country: US (occurrence: None)
  Receive Date: 20140617
  Receipt Date: 20140617
  Transmission Date: 20141212
  Serious: No
  Sender: FDA-Public Use
  Company Number: None

PATIENT
  Age: 12 Year
  Sex: Male

DRUGS (1)
  1. GAMUNEX-C 1 GM/5GM/20 GM [Suspect]
     Indication: SYDENHAM^S CHOREA
     Dosage: 26 GM Q 2 WEEKS IV
     Route: 042
     Dates: start: 20140529

REACTIONS (1)
  - Rash [None]
